FAERS Safety Report 7269952-9 (Version None)
Quarter: 2011Q1

REPORT INFORMATION
  Report Type: 
  Country: None (occurrence: None)
  Receive Date: 20110202
  Receipt Date: 20110126
  Transmission Date: 20110831
  Serious: Yes (Hospitalization, Other)
  Sender: FDA-Public Use
  Company Number: DE-ROCHE-728331

PATIENT
  Sex: Female
  Weight: 60 kg

DRUGS (3)
  1. MITOXANTRON [Concomitant]
     Indication: MULTIPLE SCLEROSIS
     Route: 042
     Dates: start: 20070101, end: 20090101
  2. BONIVA [Suspect]
     Indication: OSTEOPOROSIS
     Dosage: CUMULATIVE DOSE NO (TO FIRST REACTION): 24 MG
     Route: 042
     Dates: start: 20070326, end: 20090602
  3. CORTICOSTEROIDS [Concomitant]
     Route: 042
     Dates: end: 20070101

REACTIONS (3)
  - PAIN IN JAW [None]
  - OSTEONECROSIS OF JAW [None]
  - TOOTH EXTRACTION [None]
